FAERS Safety Report 7332069-9 (Version None)
Quarter: 2011Q1

REPORT INFORMATION
  Report Type: 
  Country: None (occurrence: None)
  Receive Date: 20110304
  Receipt Date: 20110224
  Transmission Date: 20110831
  Serious: No
  Sender: FDA-Public Use
  Company Number: US-BIOGENIDEC-2011BI007607

PATIENT
  Age: 41 Year
  Sex: Female

DRUGS (1)
  1. AVONEX [Suspect]
     Indication: MULTIPLE SCLEROSIS
     Route: 030
     Dates: start: 20110201

REACTIONS (7)
  - ANXIETY [None]
  - INJECTION SITE HAEMATOMA [None]
  - CHILLS [None]
  - DRY MOUTH [None]
  - INJECTION SITE PAIN [None]
  - VOMITING [None]
  - NAUSEA [None]
